FAERS Safety Report 15711633 (Version 1)
Quarter: 2018Q4

REPORT INFORMATION
  Report Type: Spontaneous
  Country: DE (occurrence: DE)
  Receive Date: 20181212
  Receipt Date: 20181212
  Transmission Date: 20190205
  Serious: Yes (Other)
  Sender: FDA-Public Use
  Company Number: DE-SUN PHARMACEUTICAL INDUSTRIES LTD-2018RR-193034

PATIENT
  Age: 56 Year
  Sex: Male

DRUGS (1)
  1. ALENDRONSAURE BASICS EINMAL WOCHENTLICH 70MG TABLETTEN [Suspect]
     Active Substance: ALENDRONATE SODIUM
     Indication: OSTEOPOROSIS
     Dosage: UNK
     Route: 048
     Dates: start: 20170107, end: 20170212

REACTIONS (3)
  - Stomatitis necrotising [Unknown]
  - Mucosal necrosis [Unknown]
  - Impaired healing [Unknown]

NARRATIVE: CASE EVENT DATE: 2017
